FAERS Safety Report 7552315-6 (Version None)
Quarter: 2011Q2

REPORT INFORMATION
  Report Type: 
  Country: None (occurrence: None)
  Receive Date: 20110616
  Receipt Date: 20050602
  Transmission Date: 20111010
  Serious: Yes (Hospitalization)
  Sender: FDA-Public Use
  Company Number: PHHO2005JP07929

PATIENT
  Sex: Male
  Weight: 67 kg

DRUGS (2)
  1. DIOVAN [Suspect]
     Indication: HYPERTENSION
     Dosage: 80 MG DAILY
     Dates: start: 20030523
  2. NATRIX [Concomitant]
     Indication: HYPERTENSION
     Dosage: UNKNOWN

REACTIONS (4)
  - PARAESTHESIA [None]
  - CEREBRAL INFARCTION [None]
  - DEHYDRATION [None]
  - ASTHENIA [None]
